FAERS Safety Report 8808668 (Version 1)
Quarter: 2012Q4

REPORT INFORMATION
  Report Type: Spontaneous
  Country: US (occurrence: None)
  Receive Date: 20120921
  Receipt Date: 20120921
  Transmission Date: 20130627
  Serious: Yes (Life-Threatening, Other)
  Sender: FDA-Public Use
  Company Number: None

PATIENT
  Age: 36 Year
  Sex: Female
  Weight: 72.58 kg

DRUGS (1)
  1. HUMIRA [Suspect]
     Dosage: 1 injection every 2 weeks Injection
     Dates: start: 2010, end: 2012

REACTIONS (1)
  - B-cell lymphoma [None]
